FAERS Safety Report 25980087 (Version 2)
Quarter: 2025Q4

REPORT INFORMATION
  Report Type: Spontaneous
  Country: DZ (occurrence: DZ)
  Receive Date: 20251030
  Receipt Date: 20251114
  Transmission Date: 20260118
  Serious: Yes (Hospitalization, Other)
  Sender: NOVO NORDISK
  Company Number: DZ-NOVOPROD-1545269

PATIENT
  Sex: Female
  Weight: 60 kg

DRUGS (4)
  1. CATRIDECACOG [Suspect]
     Active Substance: CATRIDECACOG
     Indication: Factor XIII deficiency
     Dosage: 35 IU/KG/MONTH
     Dates: start: 202507
  2. CATRIDECACOG [Suspect]
     Active Substance: CATRIDECACOG
     Dosage: PROPHYLACTIC REGIMEN NOW EVERY 3 WEEKS (21 DAYS)
  3. CATRIDECACOG [Suspect]
     Active Substance: CATRIDECACOG
     Dosage: 35 IU/KG (EMERGENCY DOSE)
  4. CATRIDECACOG [Suspect]
     Active Substance: CATRIDECACOG
     Dosage: 30 IU/KG (URGENT DOSE ADMINISTRATION)

REACTIONS (2)
  - Heavy menstrual bleeding [Not Recovered/Not Resolved]
  - Shock haemorrhagic [Not Recovered/Not Resolved]

NARRATIVE: CASE EVENT DATE: 20250901
